FAERS Safety Report 4490425-0 (Version None)
Quarter: 2004Q4

REPORT INFORMATION
  Report Type: 
  Country: None (occurrence: None)
  Receive Date: 20041028
  Receipt Date: 20041015
  Transmission Date: 20050328
  Serious: Yes (Other)
  Sender: FDA-Public Use
  Company Number: 2004239658NL

PATIENT
  Age: 69 Year
  Sex: Female

DRUGS (5)
  1. CELEBREX [Suspect]
     Indication: OVARIAN CANCER
     Dosage: SEE IMAGE
     Route: 048
     Dates: start: 20040824, end: 20040904
  2. COMPARATOR-DOCETAXEL (DOCETAXEL)INJECTION [Suspect]
     Indication: OVARIAN CANCER
     Dosage: 75 MG/M2, CYCLIC, EVERY 3 WEEKS , IV
     Route: 042
     Dates: start: 20040824
  3. CARBOPLATIN [Suspect]
     Indication: OVARIAN CANCER
     Dosage: CYCLIC, EVERY 3 WEEKS, IV
     Route: 042
     Dates: start: 20040824
  4. METOCLOPRAMIDE [Concomitant]
  5. DEXAMETASON [Concomitant]

REACTIONS (1)
  - EXANTHEM [None]
